FAERS Safety Report 5005337-3 (Version None)
Quarter: 2006Q2

REPORT INFORMATION
  Report Type: 
  Country: None (occurrence: None)
  Receive Date: 20060515
  Receipt Date: 20060502
  Transmission Date: 20061013
  Serious: Yes (Other)
  Sender: FDA-Public Use
  Company Number: 2006058537

PATIENT
  Age: 37 Year
  Sex: Female
  Weight: 73.4827 kg

DRUGS (1)
  1. VFEND [Suspect]
     Indication: SYSTEMIC CANDIDA
     Dosage: (7 ML, 2 IN 1 D), ORAL
     Route: 048
     Dates: start: 20060410

REACTIONS (12)
  - BLISTER [None]
  - BURNING SENSATION [None]
  - DIZZINESS [None]
  - DRUG INEFFECTIVE [None]
  - EYE SWELLING [None]
  - INCREASED TENDENCY TO BRUISE [None]
  - NAUSEA [None]
  - PRURITUS GENERALISED [None]
  - SCAB [None]
  - SKIN ATROPHY [None]
  - SKIN EXFOLIATION [None]
  - VISION BLURRED [None]
